FAERS Safety Report 4428066-3 (Version None)
Quarter: 2004Q3

REPORT INFORMATION
  Report Type: 
  Country: None (occurrence: None)
  Receive Date: 20040813
  Receipt Date: 20040729
  Transmission Date: 20050211
  Serious: Yes (Hospitalization, Disabling)
  Sender: FDA-Public Use
  Company Number: 04P-163-0257102-00

PATIENT
  Age: 27 Year
  Sex: Male

DRUGS (9)
  1. DEPAKOTE [Suspect]
     Indication: DEPRESSION
     Dates: start: 20000728, end: 20020516
  2. LAMOTRIGINE [Suspect]
     Indication: ANXIETY
     Dosage: 25MG, 2 IN 1 D  : 25 MG
     Dates: start: 20020421, end: 20020505
  3. LAMOTRIGINE [Suspect]
     Indication: DEPRESSION
     Dosage: 25MG, 2 IN 1 D  : 25 MG
     Dates: start: 20020421, end: 20020505
  4. LAMOTRIGINE [Suspect]
     Indication: ANXIETY
     Dosage: 25MG, 2 IN 1 D  : 25 MG
     Dates: start: 20020505, end: 20020516
  5. LAMOTRIGINE [Suspect]
     Indication: DEPRESSION
     Dosage: 25MG, 2 IN 1 D  : 25 MG
     Dates: start: 20020505, end: 20020516
  6. AZITHROMYCIN [Concomitant]
  7. PREDNISONE [Concomitant]
  8. HYDROXYZINE [Concomitant]
  9. OLOPATADINE [Concomitant]

REACTIONS (22)
  - ANXIETY [None]
  - BEDRIDDEN [None]
  - CONJUNCTIVAL DISORDER [None]
  - DEPRESSED LEVEL OF CONSCIOUSNESS [None]
  - DRUG INTERACTION [None]
  - DYSPNOEA [None]
  - EXOPHTHALMOS [None]
  - EYE DISORDER [None]
  - EYE IRRITATION [None]
  - EYELID FUNCTION DISORDER [None]
  - FATIGUE [None]
  - FEELING ABNORMAL [None]
  - KERATITIS [None]
  - LACRIMATION INCREASED [None]
  - PHOTOPHOBIA [None]
  - PHYSICAL EXAMINATION ABNORMAL [None]
  - PRODUCTIVE COUGH [None]
  - SEPSIS [None]
  - STEVENS-JOHNSON SYNDROME [None]
  - TOXIC EPIDERMAL NECROLYSIS [None]
  - VISUAL DISTURBANCE [None]
  - WHITE BLOOD CELL COUNT DECREASED [None]
